FAERS Safety Report 9767515 (Version 1)
Quarter: 2013Q4

REPORT INFORMATION
  Report Type: Spontaneous
  Country: US (occurrence: US)
  Receive Date: 20131217
  Receipt Date: 20131217
  Transmission Date: 20140711
  Serious: No
  Sender: FDA-Public Use
  Company Number: US-PFIZER INC-2013359714

PATIENT
  Age: 70 Year
  Sex: Female
  Weight: 63.04 kg

DRUGS (6)
  1. GABAPENTIN [Suspect]
     Indication: POST HERPETIC NEURALGIA
     Dosage: 300 MG, 1X/DAY
     Route: 048
     Dates: start: 20131209
  2. GABAPENTIN [Suspect]
     Indication: FIBROMYALGIA
     Dosage: 300 MG, 2X/DAY
     Route: 048
     Dates: start: 20131210
  3. GABAPENTIN [Suspect]
     Dosage: 300 MG, 3X/DAY
     Route: 048
     Dates: start: 20131211, end: 20131211
  4. LISINOPRIL [Concomitant]
     Dosage: 20 MG, 1X/DAY
  5. CYMBALTA [Concomitant]
     Dosage: 90 MG, 1X/DAY
  6. ATORVASTATIN [Concomitant]
     Dosage: 80 MG, 1X/DAY

REACTIONS (5)
  - Off label use [Unknown]
  - Drug ineffective for unapproved indication [Not Recovered/Not Resolved]
  - Pruritus [Recovering/Resolving]
  - Headache [Recovering/Resolving]
  - Drug hypersensitivity [Unknown]
